FAERS Safety Report 4954695-4 (Version None)
Quarter: 2006Q1

REPORT INFORMATION
  Report Type: 
  Country: None (occurrence: None)
  Receive Date: 20060131
  Receipt Date: 20051222
  Transmission Date: 20060701
  Serious: No
  Sender: FDA-Public Use
  Company Number: WAE 0512USA03573

PATIENT
  Age: 50 Year
  Sex: Female

DRUGS (1)
  1. EMEND [Suspect]
     Route: 065

REACTIONS (4)
  - ACCIDENTAL EXPOSURE [None]
  - FEELING HOT [None]
  - OEDEMA PERIPHERAL [None]
  - PRURITUS [None]
